FAERS Safety Report 4659899-6 (Version None)
Quarter: 2005Q2

REPORT INFORMATION
  Report Type: 
  Country: None (occurrence: None)
  Receive Date: 20050510
  Receipt Date: 20041209
  Transmission Date: 20051028
  Serious: Yes (Hospitalization)
  Sender: FDA-Public Use
  Company Number: PAR_0032_2005

PATIENT
  Age: 80 Year
  Sex: Female

DRUGS (7)
  1. ISOPTIN [Suspect]
     Dosage: 120 MG QDAY PO
     Route: 048
     Dates: end: 20040421
  2. NITROGLYCERIN [Concomitant]
  3. NOCTRAN [Concomitant]
  4. BROMAZEPAM [Concomitant]
  5. ACETYLSALICYLATE LYSINE [Concomitant]
  6. TRANSILANE [Concomitant]
  7. PIRIBEDIL [Concomitant]

REACTIONS (8)
  - AORTIC STENOSIS [None]
  - ATRIOVENTRICULAR BLOCK COMPLETE [None]
  - BLOOD PRESSURE DECREASED [None]
  - CARDIAC MURMUR [None]
  - CONFUSIONAL STATE [None]
  - DEPRESSED LEVEL OF CONSCIOUSNESS [None]
  - GLASGOW COMA SCALE ABNORMAL [None]
  - OVERDOSE [None]
